FAERS Safety Report 10234862 (Version 2)
Quarter: 2014Q2

REPORT INFORMATION
  Report Type: Report from Study
  Country: KR (occurrence: KR)
  Receive Date: 20140613
  Receipt Date: 20140623
  Transmission Date: 20141212
  Serious: Yes (Hospitalization)
  Sender: FDA-Public Use
  Company Number: KR-ROCHE-1412683

PATIENT
  Age: 27 Year
  Sex: Male
  Weight: 62.7 kg

DRUGS (23)
  1. TRASTUZUMAB [Suspect]
     Indication: HER-2 POSITIVE GASTRIC CANCER
     Dosage: LOADING DOSE
     Route: 042
     Dates: start: 20140425, end: 20140425
  2. TRASTUZUMAB [Suspect]
     Dosage: MOST RECENT DOSE PRIOR TO EVENT: 15/MAY/2014, MAINTAINANCE DOSE
     Route: 042
  3. CAPECITABINE [Suspect]
     Indication: HER-2 POSITIVE GASTRIC CANCER
     Dosage: MOST RECENT DOSE PRIOR TO EVENT: 29/MAY/2014
     Route: 048
     Dates: start: 20140425
  4. CISPLATIN [Suspect]
     Indication: HER-2 POSITIVE GASTRIC CANCER
     Dosage: MOST RECENT DOSE PRIOR TO EVENT: 15/MAY/2014
     Route: 042
     Dates: start: 20140425
  5. SODIUM BICARBONATE [Concomitant]
     Indication: STOMATITIS
     Route: 050
     Dates: start: 20140424
  6. DEXAMETHASONE [Concomitant]
     Indication: NAUSEA
     Route: 042
     Dates: start: 20140425
  7. DEXAMETHASONE [Concomitant]
     Indication: VOMITING
     Route: 048
     Dates: start: 20140516, end: 20140518
  8. DEXAMETHASONE [Concomitant]
     Indication: ILEUS
     Route: 065
     Dates: start: 20140607, end: 20140608
  9. NASEA [Concomitant]
     Indication: NAUSEA
     Route: 042
     Dates: start: 20140425
  10. NASEA [Concomitant]
     Indication: VOMITING
  11. EMEND [Concomitant]
     Indication: NAUSEA
     Route: 048
     Dates: start: 20140425
  12. EMEND [Concomitant]
     Indication: VOMITING
     Route: 048
     Dates: start: 20140516, end: 20140517
  13. ARESTAL [Concomitant]
     Indication: DIARRHOEA
     Route: 048
     Dates: start: 20140507, end: 20140531
  14. SMECTA [Concomitant]
     Indication: DIARRHOEA
     Route: 048
     Dates: start: 20140426, end: 20140519
  15. ZANTAC [Concomitant]
     Indication: GASTRITIS
     Route: 048
     Dates: start: 20140516, end: 20140518
  16. MAGNESIUM SULPHATE [Concomitant]
     Indication: ELECTROLYTE IMBALANCE
     Route: 042
     Dates: start: 20140515
  17. LASIX [Concomitant]
     Indication: HYPERVOLAEMIA
     Route: 065
     Dates: start: 20140515
  18. MACPERAN [Concomitant]
     Indication: NAUSEA
     Route: 048
     Dates: start: 20140525, end: 20140531
  19. MACPERAN [Concomitant]
     Indication: VOMITING
  20. ANTASOL [Concomitant]
     Indication: DECREASED APPETITE
     Route: 042
     Dates: start: 20140531, end: 20140531
  21. MUTERAN [Concomitant]
     Indication: BLOOD CREATININE INCREASED
     Route: 048
     Dates: start: 20140606, end: 20140606
  22. PERTUZUMAB [Suspect]
     Indication: HER-2 POSITIVE GASTRIC CANCER
     Dosage: LOADING DOSE, AS PER PROTOCOL
     Route: 042
     Dates: start: 20140425, end: 20140425
  23. PERTUZUMAB [Suspect]
     Dosage: MOST RECENT DOSE PRIOR TO SAE: 15/MAY/2014, AS PER PROTOCOL
     Route: 042

REACTIONS (1)
  - Ileus [Recovered/Resolved]
